FAERS Safety Report 8901684 (Version 1)
Quarter: 2012Q4

REPORT INFORMATION
  Report Type: Spontaneous
  Country: ES (occurrence: None)
  Receive Date: 20121101
  Receipt Date: 20121101
  Transmission Date: 20130627
  Serious: Yes (Other)
  Sender: FDA-Public Use
  Company Number: B0840955A

PATIENT
  Age: 61 Year
  Sex: Male

DRUGS (9)
  1. ACYCLOVIR [Suspect]
     Indication: ENCEPHALITIS VIRAL
     Dosage: Intra
  2. METFORMIN HYDROCHLORIDE [Concomitant]
  3. INDAPAMIDE [Concomitant]
  4. ENOXAPARIN [Concomitant]
  5. AMLODIPINE [Concomitant]
  6. INSULIN [Concomitant]
  7. METOCLOPRAMIDE [Concomitant]
  8. PARACETAMOL [Concomitant]
  9. CITALOPRAM [Concomitant]

REACTIONS (2)
  - Hyponatraemia [None]
  - Depressive symptom [None]
